FAERS Safety Report 8529373-5 (Version None)
Quarter: 2012Q2

REPORT INFORMATION
  Report Type: 
  Country: None (occurrence: None)
  Receive Date: 20120409
  Receipt Date: 20110819
  Transmission Date: 20120825
  Serious: Yes (Other)
  Sender: FDA-Public Use
  Company Number: 2011-346

PATIENT
  Age: 27 Year
  Sex: Female
  Weight: 75.9 kg

DRUGS (13)
  1. TRILEPTAL [Concomitant]
  2. LAMICTAL [Concomitant]
  3. DOCUSATE SODIUM (DOCUSATE SODIUM) [Concomitant]
  4. CARBATROL [Concomitant]
  5. BISACODYL [Concomitant]
  6. ONE DAILY (ASCORBIC ACID, CYANOCOBALAMIN, ERGOCALCIFEROL, FOLIC ACID, [Concomitant]
  7. OMEPRAZOLE [Concomitant]
  8. FAZACLO ODT [Suspect]
     Indication: SCHIZOPHRENIA, CATATONIC TYPE
     Dosage: 250 MG, QD, ORAL
     Route: 048
     Dates: start: 20091230
  9. FAZACLO ODT [Suspect]
     Indication: SCHIZOAFFECTIVE DISORDER
     Dosage: 250 MG, QD, ORAL
     Route: 048
     Dates: start: 20091230
  10. NIASPAN [Concomitant]
  11. LORATADINE [Concomitant]
  12. GABAPENTIN [Concomitant]
  13. POTASSIUM CHLORIDE [Concomitant]

REACTIONS (1)
  - CONVULSION [None]
